FAERS Safety Report 25395948 (Version 1)
Quarter: 2025Q2

REPORT INFORMATION
  Report Type: Spontaneous
  Country: CN (occurrence: CN)
  Receive Date: 20250604
  Receipt Date: 20250604
  Transmission Date: 20250717
  Serious: Yes (Other)
  Sender: NOVARTIS
  Company Number: CN-002147023-NVSC2025CN087207

PATIENT
  Age: 76 Year
  Sex: Female

DRUGS (2)
  1. EVEROLIMUS [Suspect]
     Active Substance: EVEROLIMUS
     Indication: Targeted cancer therapy
     Dosage: 5 MG, QD
     Route: 048
     Dates: start: 20250402, end: 20250402
  2. VOROLANIB [Suspect]
     Active Substance: VOROLANIB
     Indication: Targeted cancer therapy
     Dosage: 200 MG, QD
     Route: 048
     Dates: start: 20250402, end: 20250402

REACTIONS (4)
  - Myelosuppression [Recovering/Resolving]
  - Blood potassium decreased [Recovering/Resolving]
  - Nausea [Unknown]
  - Vomiting [Unknown]

NARRATIVE: CASE EVENT DATE: 20250507
